FAERS Safety Report 20357364 (Version 1)
Quarter: 2022Q1

REPORT INFORMATION
  Report Type: Spontaneous
  Country: US (occurrence: US)
  Receive Date: 20220120
  Receipt Date: 20220120
  Transmission Date: 20220423
  Serious: No
  Sender: FDA-Public Use
  Company Number: US-009507513-2201USA002604

PATIENT

DRUGS (1)
  1. STROMECTOL [Suspect]
     Active Substance: IVERMECTIN
     Indication: COVID-19 prophylaxis
     Dosage: 4 TABLETS TWO TIMES A WEEK
     Route: 048

REACTIONS (3)
  - Product use in unapproved indication [Unknown]
  - Incorrect dose administered [Unknown]
  - Product prescribing issue [Unknown]
